FAERS Safety Report 13284352 (Version 1)
Quarter: 2017Q1

REPORT INFORMATION
  Report Type: Spontaneous
  Country: US (occurrence: US)
  Receive Date: 20170301
  Receipt Date: 20170301
  Transmission Date: 20170428
  Serious: No
  Sender: FDA-Public Use
  Company Number: US-INSYS THERAPEUTICS, INC-INS201610-000586

PATIENT
  Sex: Female
  Weight: 63.5 kg

DRUGS (2)
  1. SUBSYS [Suspect]
     Active Substance: FENTANYL
     Indication: PRODUCT USED FOR UNKNOWN INDICATION
  2. SUBSYS [Suspect]
     Active Substance: FENTANYL

REACTIONS (2)
  - Product quality issue [Unknown]
  - Tooth fracture [Unknown]
